FAERS Safety Report 25366660 (Version 3)
Quarter: 2025Q4

REPORT INFORMATION
  Report Type: Spontaneous
  Country: US (occurrence: US)
  Receive Date: 20250528
  Receipt Date: 20251009
  Transmission Date: 20260117
  Serious: No
  Sender: DR REDDYS
  Company Number: US-DRL-USA-USA/2025/05/007386

PATIENT
  Sex: Female

DRUGS (2)
  1. ZENATANE [Suspect]
     Active Substance: ISOTRETINOIN
     Indication: Acne
     Dosage: NDC NUMBER: 55111-0136-81 FOR ZENATANE 20 MG
     Route: 065
     Dates: start: 20250301
  2. ZENATANE [Suspect]
     Active Substance: ISOTRETINOIN
     Dosage: NDC NUMBER: 55111-0137-81 FOR ZENATANE 40 MG
     Route: 065

REACTIONS (3)
  - Product dose omission in error [Unknown]
  - Adverse drug reaction [Unknown]
  - Drug ineffective [Unknown]
